FAERS Safety Report 10167840 (Version 1)
Quarter: 2014Q2

REPORT INFORMATION
  Report Type: Spontaneous
  Country: BE (occurrence: BE)
  Receive Date: 20140512
  Receipt Date: 20140512
  Transmission Date: 20141212
  Serious: Yes (Life-Threatening)
  Sender: FDA-Public Use
  Company Number: BE-B.I. PHARMACEUTICALS,INC./RIDGEFIELD-2014-BI-20677BL

PATIENT
  Age: 89 Year
  Sex: Female

DRUGS (5)
  1. PRADAXA [Suspect]
     Indication: ATRIAL FIBRILLATION
     Dosage: 220 MG
     Route: 048
  2. LIPANTHYLNANO [Suspect]
     Indication: HYPERCHOLESTEROLAEMIA
     Dosage: 145 MG
     Route: 048
  3. EMCONCOR [Suspect]
     Indication: CARDIAC FAILURE
     Dosage: 10 MG
     Route: 048
  4. EMCONCOR [Suspect]
     Indication: ATRIAL FIBRILLATION
  5. BURINEX [Concomitant]
     Indication: CARDIAC FAILURE
     Dosage: 1 MG
     Route: 048

REACTIONS (1)
  - Hypoglycaemia [Not Recovered/Not Resolved]
